FAERS Safety Report 14257234 (Version 1)
Quarter: 2017Q4

REPORT INFORMATION
  Report Type: Report from Study
  Country: RO (occurrence: RO)
  Receive Date: 20171206
  Receipt Date: 20171206
  Transmission Date: 20180321
  Serious: Yes (Death, Hospitalization)
  Sender: FDA-Public Use
  Company Number: RO-INGENUS PHARMACEUTICALS NJ, LLC-ING201711-000639

PATIENT

DRUGS (1)
  1. PROBENECID AND COLCHICINE [Suspect]
     Active Substance: COLCHICINE\PROBENECID
     Dosage: 60 TABLETS

REACTIONS (2)
  - Acute hepatic failure [Fatal]
  - Intentional overdose [Fatal]
